FAERS Safety Report 6242855-4 (Version None)
Quarter: 2009Q2

REPORT INFORMATION
  Report Type: 
  Country: None (occurrence: None)
  Receive Date: 20090624
  Receipt Date: 20090615
  Transmission Date: 20091009
  Serious: Yes (Hospitalization, Other)
  Sender: FDA-Public Use
  Company Number: B0573567A

PATIENT
  Sex: Male
  Weight: 60 kg

DRUGS (5)
  1. ARIXTRA [Suspect]
     Indication: ACUTE CORONARY SYNDROME
     Dosage: 2.5MG PER DAY
     Route: 065
  2. HEPARIN [Concomitant]
     Route: 065
  3. ASPIRIN [Concomitant]
     Route: 065
  4. UNKNOWN DRUG [Concomitant]
     Route: 065
  5. CILOSTAZOL [Concomitant]
     Route: 065

REACTIONS (2)
  - CATHETER THROMBOSIS [None]
  - DRUG INEFFECTIVE [None]
